FAERS Safety Report 4840072-3 (Version None)
Quarter: 2005Q4

REPORT INFORMATION
  Report Type: 
  Country: None (occurrence: None)
  Receive Date: 20051129
  Receipt Date: 20050803
  Transmission Date: 20060501
  Serious: Yes (Life-Threatening, Hospitalization, Disabling, Other)
  Sender: FDA-Public Use
  Company Number: PHEH2005US08625

PATIENT
  Age: 68 Year
  Sex: Female
  Weight: 81.632 kg

DRUGS (1)
  1. DIOVAN [Suspect]
     Indication: HYPERTENSION
     Dosage: 160 MG, QD
     Route: 048
     Dates: start: 20050601

REACTIONS (7)
  - BLOOD PRESSURE INCREASED [None]
  - CAROTID ARTERY OCCLUSION [None]
  - CEREBRAL INFARCTION [None]
  - DYSARTHRIA [None]
  - HEMIPARESIS [None]
  - RENAL ARTERY OCCLUSION [None]
  - STENT PLACEMENT [None]
